FAERS Safety Report 9591826 (Version 2)
Quarter: 2013Q4

REPORT INFORMATION
  Report Type: Spontaneous
  Country: US (occurrence: US)
  Receive Date: 20131004
  Receipt Date: 20131004
  Transmission Date: 20140711
  Serious: No
  Sender: FDA-Public Use
  Company Number: US-AMGEN-USASP2012067211

PATIENT
  Age: 40 Year
  Sex: Female

DRUGS (2)
  1. ENBREL [Suspect]
     Indication: RHEUMATOID ARTHRITIS
     Dosage: 25 MG, 2 TIMES/WK
     Dates: start: 20120731, end: 201301
  2. ARAVA [Concomitant]
     Dosage: UNK

REACTIONS (4)
  - Mobility decreased [Recovered/Resolved]
  - Arthralgia [Recovered/Resolved]
  - Local swelling [Recovered/Resolved]
  - Musculoskeletal stiffness [Recovered/Resolved]
